FAERS Safety Report 8256066-4 (Version None)
Quarter: 2012Q2

REPORT INFORMATION
  Report Type: 
  Country: None (occurrence: None)
  Receive Date: 20120403
  Receipt Date: 20120321
  Transmission Date: 20120825
  Serious: Yes (Other)
  Sender: FDA-Public Use
  Company Number: AU-ROCHE-1055267

PATIENT
  Age: 69 Year
  Sex: Male

DRUGS (14)
  1. MIRCERA [Suspect]
     Dates: start: 20110601
  2. MIRCERA [Suspect]
     Dates: start: 20110629
  3. MIRCERA [Suspect]
     Dates: start: 20120101
  4. MIRCERA [Suspect]
     Dates: start: 20110302
  5. MIRCERA [Suspect]
     Dates: start: 20110502
  6. ALLOPURINOL [Concomitant]
  7. MIRCERA [Suspect]
     Dates: start: 20110131
  8. MIRCERA [Suspect]
     Dates: start: 20110404
  9. MIRCERA [Suspect]
     Dates: start: 20110601
  10. MIRCERA [Suspect]
     Dates: start: 20111101
  11. GLICLAZIDE [Concomitant]
  12. MIRCERA [Suspect]
     Indication: RENAL FAILURE CHRONIC
     Dates: start: 20110117
  13. MIRCERA [Suspect]
     Route: 042
     Dates: start: 20090601
  14. WARFARIN SODIUM [Concomitant]

REACTIONS (1)
  - HAEMOGLOBIN DECREASED [None]
